FAERS Safety Report 5782174-3 (Version None)
Quarter: 2008Q2

REPORT INFORMATION
  Report Type: 
  Country: None (occurrence: None)
  Receive Date: 20080623
  Receipt Date: 20080422
  Transmission Date: 20081010
  Serious: Yes (Other)
  Sender: FDA-Public Use
  Company Number: GB-SANOFI-SYNTHELABO-A01200804858

PATIENT
  Sex: Female

DRUGS (4)
  1. ASPIRIN [Concomitant]
     Indication: ARTERIAL RESTENOSIS
     Dosage: UNK
     Route: 065
  2. ASPIRIN [Concomitant]
     Indication: THROMBOSIS
     Dosage: UNK
     Route: 065
  3. PLAVIX [Suspect]
     Indication: ARTERIAL RESTENOSIS
     Route: 048
  4. PLAVIX [Suspect]
     Indication: THROMBOSIS
     Route: 048

REACTIONS (8)
  - FATIGUE [None]
  - GASTROINTESTINAL PAIN [None]
  - HAEMOGLOBIN ABNORMAL [None]
  - MYALGIA [None]
  - OVERDOSE [None]
  - PYREXIA [None]
  - RETICULOCYTE COUNT INCREASED [None]
  - SERUM FERRITIN INCREASED [None]
